FAERS Safety Report 5227031-6 (Version None)
Quarter: 2007Q1

REPORT INFORMATION
  Report Type: 
  Country: None (occurrence: None)
  Receive Date: 20070201
  Receipt Date: 20070201
  Transmission Date: 20070707
  Serious: Yes (Hospitalization)
  Sender: FDA-Public Use
  Company Number: None

PATIENT
  Sex: Female

DRUGS (8)
  1. CETUXIMAB [Suspect]
     Indication: PANCREATIC CARCINOMA
     Dosage: IV
     Route: 042
     Dates: start: 20070104
  2. GEMCITABINE [Suspect]
     Indication: PANCREATIC CARCINOMA
     Dosage: IV
     Route: 042
     Dates: start: 20070104
  3. OXALIPLATIN [Suspect]
     Indication: PANCREATIC CARCINOMA
     Dosage: IV
     Route: 042
     Dates: start: 20070104
  4. PROTONIX [Concomitant]
  5. DARVOCET [Concomitant]
  6. LANTUS [Concomitant]
  7. NOVOLOG [Concomitant]
  8. VIOKASE [Concomitant]

REACTIONS (5)
  - CAECITIS [None]
  - DIARRHOEA [None]
  - INFECTION [None]
  - MALIGNANT NEOPLASM PROGRESSION [None]
  - NO THERAPEUTIC RESPONSE [None]
